FAERS Safety Report 11878936 (Version 1)
Quarter: 2015Q4

REPORT INFORMATION
  Report Type: Spontaneous
  Country: RU (occurrence: RU)
  Receive Date: 20151230
  Receipt Date: 20151230
  Transmission Date: 20160305
  Serious: Yes (Other)
  Sender: FDA-Public Use
  Company Number: RU-GLAXOSMITHKLINE-RU2015GSK182267

PATIENT
  Age: 75 Year
  Sex: Female

DRUGS (2)
  1. LACIPIL [Suspect]
     Active Substance: LACIDIPINE
     Indication: HYPERTENSION
     Dosage: 4 MG, QD
  2. AVANDAMET [Suspect]
     Active Substance: METFORMIN HYDROCHLORIDE\ROSIGLITAZONE MALEATE
     Indication: DIABETES MELLITUS
     Dosage: UNK
     Dates: start: 2007

REACTIONS (1)
  - Angina unstable [Not Recovered/Not Resolved]

NARRATIVE: CASE EVENT DATE: 2013
